FAERS Safety Report 8743284 (Version 2)
Quarter: 2013Q4

REPORT INFORMATION
  Report Type: Report from Study
  Country: US (occurrence: US)
  Receive Date: 20120824
  Receipt Date: 20131105
  Transmission Date: 20140711
  Serious: Yes (Other)
  Sender: FDA-Public Use
  Company Number: US-009507513-1208USA007751

PATIENT
  Sex: Male

DRUGS (10)
  1. VICTRELIS [Suspect]
     Indication: CHRONIC HEPATITIS C
     Dosage: 4 UNK, UNK
  2. PEGINTERFERON ALFA-2A [Suspect]
     Indication: CHRONIC HEPATITIS C
     Dosage: 180 MICROGRAM, QW
  3. REBETOL [Suspect]
     Indication: CHRONIC HEPATITIS C
     Dosage: 1200 MG, UNK
  4. ATROPINE SULFATE [Concomitant]
  5. NEUPOGEN [Concomitant]
  6. PROCRIT [Concomitant]
  7. HYOSCYAMINE HYDROBROMIDE [Concomitant]
  8. ACETAMINOPHEN [Concomitant]
  9. PHENOBARBITAL [Concomitant]
  10. SCOPOLAMINE HYDROBROMIDE [Concomitant]

REACTIONS (3)
  - White blood cell count decreased [Unknown]
  - Cough [Unknown]
  - Fatigue [Unknown]
